FAERS Safety Report 5044295-2 (Version None)
Quarter: 2006Q2

REPORT INFORMATION
  Report Type: 
  Country: None (occurrence: None)
  Receive Date: 20060601
  Receipt Date: 20060130
  Transmission Date: 20061013
  Serious: No
  Sender: FDA-Public Use
  Company Number: 2006PV007849

PATIENT
  Age: 65 Year
  Sex: Male
  Weight: 119.7496 kg

DRUGS (4)
  1. BYETTA [Suspect]
     Indication: DIABETES MELLITUS NON-INSULIN-DEPENDENT
     Dosage: SEE IMAGE
     Route: 058
     Dates: start: 20050901, end: 20051001
  2. BYETTA [Suspect]
     Indication: DIABETES MELLITUS NON-INSULIN-DEPENDENT
     Dosage: SEE IMAGE
     Route: 058
     Dates: start: 20051001
  3. GLUCOPHAGE [Concomitant]
  4. AVANDIA [Concomitant]

REACTIONS (9)
  - BLOOD GLUCOSE INCREASED [None]
  - HYPERHIDROSIS [None]
  - INSOMNIA [None]
  - NASOPHARYNGITIS [None]
  - PRODUCTIVE COUGH [None]
  - PYREXIA [None]
  - RALES [None]
  - THERAPEUTIC RESPONSE UNEXPECTED [None]
  - WEIGHT DECREASED [None]
